FAERS Safety Report 24647651 (Version 2)
Quarter: 2024Q4

REPORT INFORMATION
  Report Type: Report from Study
  Country: US (occurrence: US)
  Receive Date: 20241121
  Receipt Date: 20241220
  Transmission Date: 20250115
  Serious: Yes (Other)
  Sender: DAIICHI
  Company Number: US-DSJP-DSU-2024-144807

PATIENT
  Sex: Female

DRUGS (3)
  1. ENHERTU [Suspect]
     Active Substance: FAM-TRASTUZUMAB DERUXTECAN-NXKI
     Indication: Ovarian cancer
     Dosage: 300 MG
     Route: 042
     Dates: start: 20240709, end: 20240709
  2. ENHERTU [Suspect]
     Active Substance: FAM-TRASTUZUMAB DERUXTECAN-NXKI
     Dosage: 300 MG
     Route: 042
     Dates: start: 20240813, end: 20240813
  3. ENHERTU [Suspect]
     Active Substance: FAM-TRASTUZUMAB DERUXTECAN-NXKI
     Dosage: 300 MG, ONCE EVERY 3 WK (INFUSE 300MG INTO A VENOUS CATHETER EVERY 21 DAYS)
     Route: 042
     Dates: start: 20240703, end: 20241211

REACTIONS (2)
  - Pulmonary toxicity [Unknown]
  - Therapy cessation [Not Recovered/Not Resolved]
